FAERS Safety Report 6300376-4 (Version None)
Quarter: 2009Q3

REPORT INFORMATION
  Report Type: 
  Country: None (occurrence: None)
  Receive Date: 20090806
  Receipt Date: 20080829
  Transmission Date: 20100115
  Serious: No
  Sender: FDA-Public Use
  Company Number: US-ABBOTT-08P-163-0473272-00

PATIENT
  Age: 17 Year
  Sex: Female

DRUGS (2)
  1. DEPAKOTE ER [Suspect]
     Indication: BIPOLAR DISORDER
     Route: 048
     Dates: start: 20060101
  2. LITHIUM [Concomitant]
     Indication: BIPOLAR DISORDER
     Route: 048

REACTIONS (1)
  - WEIGHT INCREASED [None]
